FAERS Safety Report 7273879-6 (Version None)
Quarter: 2011Q1

REPORT INFORMATION
  Report Type: 
  Country: None (occurrence: None)
  Receive Date: 20110203
  Receipt Date: 20110131
  Transmission Date: 20110831
  Serious: Yes (Death)
  Sender: FDA-Public Use
  Company Number: AR-GENENTECH-310948

PATIENT
  Sex: Female
  Weight: 84.5 kg

DRUGS (1)
  1. RANIBIZUMAB [Suspect]
     Indication: DIABETIC RETINAL OEDEMA
     Dosage: 23 UNK, 1/MONTH
     Route: 031
     Dates: start: 20101010, end: 20101103

REACTIONS (1)
  - DEATH [None]
